FAERS Safety Report 13905608 (Version 1)
Quarter: 2017Q3

REPORT INFORMATION
  Report Type: Spontaneous
  Country: FR (occurrence: FR)
  Receive Date: 20170825
  Receipt Date: 20170825
  Transmission Date: 20171127
  Serious: Yes (Death, Life-Threatening)
  Sender: FDA-Public Use
  Company Number: FR-SA-2017SA156031

PATIENT
  Age: 9 Month
  Sex: Male
  Weight: 8.7 kg

DRUGS (13)
  1. MABTHERA [Suspect]
     Active Substance: RITUXIMAB
     Indication: EPSTEIN-BARR VIRUS ASSOCIATED LYMPHOPROLIFERATIVE DISORDER
     Dosage: INTRAVENOUS (INFUSION)
     Dates: start: 20170624, end: 20170624
  2. FASTURTEC [Suspect]
     Active Substance: RASBURICASE
     Indication: TUMOUR INVASION
     Dosage: INTRAVENOUS (INFUSION)
     Route: 042
     Dates: start: 20170709, end: 20170709
  3. VANCOMYCIN MYLAN [Suspect]
     Active Substance: VANCOMYCIN
     Indication: SEPSIS
     Dosage: INTRAVENOUS (INFUSION)
     Dates: start: 20170616, end: 20170630
  4. CELLCEPT [Concomitant]
     Active Substance: MYCOPHENOLATE MOFETIL\MYCOPHENOLATE MOFETIL HYDROCHLORIDE
     Dates: end: 20170618
  5. FASTURTEC [Suspect]
     Active Substance: RASBURICASE
     Indication: TUMOUR INVASION
     Dosage: INTRAVENOUS (INFUSION)
     Route: 042
     Dates: start: 20170628, end: 20170628
  6. ADCETRIS [Suspect]
     Active Substance: BRENTUXIMAB VEDOTIN
     Indication: EPSTEIN-BARR VIRUS ASSOCIATED LYMPHOPROLIFERATIVE DISORDER
     Dosage: INTRAVENOUS (INFUSION)
     Dates: start: 20170621, end: 20170621
  7. FASTURTEC [Suspect]
     Active Substance: RASBURICASE
     Indication: TUMOUR INVASION
     Dosage: INTRAVENOUS (INFUSION)
     Route: 042
     Dates: start: 20170701, end: 20170701
  8. TAZOBACTAM/PIPERACILLIN [Suspect]
     Active Substance: PIPERACILLIN SODIUM\TAZOBACTAM SODIUM
     Indication: SEPSIS
     Dosage: INTRAVENOUS (INFUSION)
     Dates: start: 20170616
  9. ADCETRIS [Suspect]
     Active Substance: BRENTUXIMAB VEDOTIN
     Indication: EPSTEIN-BARR VIRUS ASSOCIATED LYMPHOPROLIFERATIVE DISORDER
     Dosage: INTRAVENOUS (INFUSION)
     Dates: start: 20170628, end: 20170628
  10. CANCIDAS [Suspect]
     Active Substance: CASPOFUNGIN ACETATE
     Indication: SEPSIS
     Dosage: INTRAVENOUS (INFUSION)
     Dates: start: 20170616
  11. MABTHERA [Suspect]
     Active Substance: RITUXIMAB
     Indication: EPSTEIN-BARR VIRUS ASSOCIATED LYMPHOPROLIFERATIVE DISORDER
     Dosage: INTRAVENOUS (INFUSION)
     Dates: start: 20170620, end: 20170620
  12. CYCLOSPORINE. [Concomitant]
     Active Substance: CYCLOSPORINE
  13. MABTHERA [Suspect]
     Active Substance: RITUXIMAB
     Indication: EPSTEIN-BARR VIRUS ASSOCIATED LYMPHOPROLIFERATIVE DISORDER
     Dosage: INTRAVENOUS (INFUSION)
     Dates: start: 20170616, end: 20170616

REACTIONS (2)
  - Toxic epidermal necrolysis [Fatal]
  - Bone marrow failure [Fatal]

NARRATIVE: CASE EVENT DATE: 20170703
